FAERS Safety Report 9161135 (Version 2)
Quarter: 2013Q4

REPORT INFORMATION
  Report Type: Spontaneous
  Country: GB (occurrence: GB)
  Receive Date: 20130313
  Receipt Date: 20131202
  Transmission Date: 20140711
  Serious: Yes (Other)
  Sender: FDA-Public Use
  Company Number: GB-MERCK-1303GBR003452

PATIENT
  Age: 35 Year
  Sex: Male
  Weight: 82 kg

DRUGS (1)
  1. PROPECIA 1MG FILM-COATED TABLET [Suspect]
     Indication: ANDROGENETIC ALOPECIA
     Dosage: 1/1 DAILY
     Route: 048
     Dates: start: 20070801, end: 20121201

REACTIONS (9)
  - Anxiety [Not Recovered/Not Resolved]
  - Fatigue [Not Recovered/Not Resolved]
  - Emotional poverty [Not Recovered/Not Resolved]
  - Feeling abnormal [Not Recovered/Not Resolved]
  - Insomnia [Not Recovered/Not Resolved]
  - Depression [Not Recovered/Not Resolved]
  - Erectile dysfunction [Not Recovered/Not Resolved]
  - Loss of libido [Not Recovered/Not Resolved]
  - Testicular pain [Not Recovered/Not Resolved]
